FAERS Safety Report 8212029-6 (Version None)
Quarter: 2012Q1

REPORT INFORMATION
  Report Type: 
  Country: None (occurrence: None)
  Receive Date: 20120315
  Receipt Date: 20120305
  Transmission Date: 20120608
  Serious: Yes (Hospitalization)
  Sender: FDA-Public Use
  Company Number: US-UCBSA-048510

PATIENT
  Age: 49 Year
  Sex: Female
  Weight: 95.5 kg

DRUGS (24)
  1. PRILOSEC [Concomitant]
     Dates: start: 20020101, end: 20110921
  2. CERTOLIZUMAB PEGOL [Suspect]
     Dosage: NO OF DOSES RECEIVED 3
     Route: 058
     Dates: start: 20110210, end: 20110310
  3. METHOTREXATE [Concomitant]
     Indication: RHEUMATOID ARTHRITIS
     Dates: start: 20000101
  4. VICODIN [Concomitant]
     Indication: RHEUMATOID ARTHRITIS
     Dosage: 5/500MG
     Dates: start: 20100710
  5. ALVESCO [Concomitant]
     Dosage: 160 MCG 2 PUFFS BID INHALATION
     Route: 055
     Dates: start: 20110620, end: 20110921
  6. VITAMIN D [Concomitant]
     Indication: VITAMIN SUPPLEMENTATION
     Dates: start: 20100601, end: 20111220
  7. ZOFRAN [Concomitant]
     Indication: NAUSEA
     Route: 042
     Dates: start: 20111220, end: 20111222
  8. EXTRA STRENGTH TYLENOL [Concomitant]
     Indication: RHEUMATOID ARTHRITIS
     Dates: start: 20101201
  9. WELLBUTRIN XL [Concomitant]
     Indication: DEPRESSION
     Dates: start: 20080101
  10. PRILOSEC [Concomitant]
     Indication: GASTROOESOPHAGEAL REFLUX DISEASE
     Dates: start: 20110924, end: 20111220
  11. CERTOLIZUMAB PEGOL [Suspect]
     Indication: RHEUMATOID ARTHRITIS
     Dosage: NO OF DOSES RECEIVED 18
     Route: 058
     Dates: start: 20110324
  12. PRILOSEC [Concomitant]
     Dates: start: 20111224
  13. DULERA ORAL INHALATION [Concomitant]
     Dosage: 2 PUFFS BID INHALATION
     Route: 055
     Dates: start: 20110620, end: 20110921
  14. DULERA ORAL INHALATION [Concomitant]
     Dosage: 2 PUFFS BID INHALATION
     Route: 055
     Dates: start: 20110620, end: 20110921
  15. DULERA ORAL INHALATION [Concomitant]
     Indication: ASTHMA
     Dosage: 2 PUFFS BID INHALATION
     Route: 055
     Dates: start: 20110924
  16. DOCUSATE SODIUM [Concomitant]
     Indication: CONSTIPATION PROPHYLAXIS
     Dates: start: 20111220, end: 20111223
  17. FOLIC ACID [Concomitant]
     Indication: VITAMIN SUPPLEMENTATION
     Dates: start: 20000101
  18. NAPROXEN (ALEVE) [Concomitant]
     Indication: RHEUMATOID ARTHRITIS
     Dates: start: 20100101
  19. DULERA ORAL INHALATION [Concomitant]
     Dosage: 2 PUFFS BID INHALATION
     Route: 055
     Dates: start: 20110924
  20. ZOFRAN [Concomitant]
     Dates: start: 20110922, end: 20110922
  21. FOSAMAX [Concomitant]
     Indication: OSTEOPOROSIS
     Dates: start: 20090201
  22. ALVESCO [Concomitant]
     Indication: ASTHMA
     Dosage: 160 MCG 2 PUFFS BID INHALATION
     Route: 055
     Dates: start: 20110924
  23. VITAMIN D [Concomitant]
     Dates: start: 20110923, end: 20111220
  24. VITAMIN D [Concomitant]
     Dates: start: 20111221

REACTIONS (1)
  - OSTEOARTHRITIS [None]
